FAERS Safety Report 20671121 (Version 1)
Quarter: 2022Q2

REPORT INFORMATION
  Report Type: Spontaneous
  Country: US (occurrence: US)
  Receive Date: 20220404
  Receipt Date: 20220404
  Transmission Date: 20220721
  Serious: No
  Sender: FDA-Public Use
  Company Number: US-SANOFI-01041992

PATIENT
  Age: 66 Year
  Sex: Female

DRUGS (2)
  1. LANTUS [Suspect]
     Active Substance: INSULIN GLARGINE
     Indication: Type 2 diabetes mellitus
     Dosage: 55 IU
     Dates: start: 20220325
  2. LANTUS [Suspect]
     Active Substance: INSULIN GLARGINE
     Dosage: 51 IU

REACTIONS (1)
  - Incorrect dose administered [Unknown]
